FAERS Safety Report 10242882 (Version 4)
Quarter: 2014Q3

REPORT INFORMATION
  Report Type: Spontaneous
  Country: ES (occurrence: ES)
  Receive Date: 20140618
  Receipt Date: 20140804
  Transmission Date: 20150326
  Serious: Yes (Death, Hospitalization)
  Sender: FDA-Public Use
  Company Number: ES-BIOGENIDEC-2014BI013696

PATIENT
  Age: 62 Year
  Sex: Female
  Weight: 56 kg

DRUGS (10)
  1. LANTUS [Concomitant]
     Active Substance: INSULIN GLARGINE
  2. EUTIROX [Concomitant]
     Active Substance: LEVOTHYROXINE SODIUM
     Indication: HYPOTHYROIDISM
  3. APIDRA [Concomitant]
     Active Substance: INSULIN GLULISINE
     Route: 058
  4. SEROXAT [Concomitant]
     Active Substance: PAROXETINE HYDROCHLORIDE
  5. TYSABRI [Suspect]
     Active Substance: NATALIZUMAB
     Indication: MULTIPLE SCLEROSIS
     Route: 042
     Dates: start: 20100528, end: 201311
  6. BENERVA [Concomitant]
     Active Substance: THIAMINE
  7. VITAMIN B12 [Concomitant]
     Active Substance: CYANOCOBALAMIN
     Indication: CHRONIC GASTRITIS
  8. REXER FLAS [Concomitant]
     Active Substance: MIRTAZAPINE
  9. CARDYL [Concomitant]
     Active Substance: ATORVASTATIN CALCIUM
  10. LIORESAL [Concomitant]
     Active Substance: BACLOFEN

REACTIONS (5)
  - Diabetic complication [Unknown]
  - Acute pulmonary oedema [Fatal]
  - Pneumonia [Recovered/Resolved]
  - Septic shock [Recovered/Resolved]
  - Cardiac failure [Fatal]
